FAERS Safety Report 4272479-X (Version None)
Quarter: 2004Q1

REPORT INFORMATION
  Report Type: 
  Country: None (occurrence: None)
  Receive Date: 20040115
  Receipt Date: 20030617
  Transmission Date: 20041129
  Serious: Yes (Hospitalization, Other)
  Sender: FDA-Public Use
  Company Number: WAES 0306USA02098

PATIENT
  Age: 69 Year
  Sex: Female
  Weight: 91 kg

DRUGS (14)
  1. TYLENOL [Concomitant]
     Dates: start: 19991201
  2. Z-PAK [Concomitant]
  3. DIURETIC (UNSPECIFIED) [Concomitant]
     Dates: start: 19980701, end: 20020101
  4. DYAZIDE [Concomitant]
     Dates: end: 20020107
  5. ADVIL [Concomitant]
     Dates: start: 19991201, end: 20020107
  6. PREVACID [Concomitant]
     Indication: DYSPEPSIA
  7. ASACOL [Concomitant]
  8. NAPROXEN [Concomitant]
     Dates: start: 19991101, end: 19991201
  9. DITROPAN [Concomitant]
     Indication: MICTURITION URGENCY
  10. QUINIDINE [Concomitant]
  11. QUININE SULFATE [Concomitant]
     Indication: MUSCLE CRAMP
     Dates: start: 20010801, end: 20020101
  12. VIOXX [Suspect]
     Route: 048
     Dates: start: 19991210
  13. VIOXX [Suspect]
     Route: 048
     Dates: start: 20000301, end: 20020107
  14. TRIAMTERENE [Concomitant]

REACTIONS (11)
  - ABDOMINAL PAIN UPPER [None]
  - BLOOD CHOLESTEROL INCREASED [None]
  - DEEP VEIN THROMBOSIS [None]
  - HYPERSENSITIVITY [None]
  - MYOCARDIAL INFARCTION [None]
  - NEPHROPATHY [None]
  - PULMONARY EMBOLISM [None]
  - RENAL FAILURE ACUTE [None]
  - RENAL FAILURE CHRONIC [None]
  - SKIN CANCER [None]
  - THROMBOPHLEBITIS [None]
